FAERS Safety Report 6861246-6 (Version None)
Quarter: 2010Q3

REPORT INFORMATION
  Report Type: 
  Country: None (occurrence: None)
  Receive Date: 20100720
  Receipt Date: 20100713
  Transmission Date: 20110219
  Serious: Yes (Death, Hospitalization, Other)
  Sender: FDA-Public Use
  Company Number: US-ELI_LILLY_AND_COMPANY-US201005002735

PATIENT
  Sex: Male
  Weight: 93.878 kg

DRUGS (9)
  1. ALIMTA [Suspect]
     Indication: LUNG ADENOCARCINOMA
     Dosage: 500 MG/M2, EVERY 21 DAYS
     Route: 042
     Dates: start: 20080415, end: 20091229
  2. VITAMIN B-12 [Concomitant]
     Dates: start: 20080506
  3. FOLIC ACID [Concomitant]
  4. DECADRON [Concomitant]
     Dosage: 20 MG, OTHER
     Dates: start: 20080415, end: 20080909
  5. DECADRON [Concomitant]
     Dosage: 10 MG, OTHER
     Dates: start: 20080930, end: 20081021
  6. DECADRON [Concomitant]
     Dosage: 20 MG, UNK
     Dates: start: 20081111
  7. VICODIN [Concomitant]
  8. PALONOSETRON [Concomitant]
     Dosage: 0.25 MG, UNK
  9. FUROSEMIDE [Concomitant]
     Dosage: UNK, AS NEEDED

REACTIONS (12)
  - ATELECTASIS [None]
  - CARDIOMEGALY [None]
  - KIDNEY FIBROSIS [None]
  - MALIGNANT NEOPLASM PROGRESSION [None]
  - PLEURAL EFFUSION [None]
  - PNEUMONIA [None]
  - PULMONARY FIBROSIS [None]
  - RENAL ARTERIOSCLEROSIS [None]
  - RENAL FAILURE [None]
  - RENAL TUBULAR ATROPHY [None]
  - RENAL TUBULAR NECROSIS [None]
  - VOMITING [None]
